FAERS Safety Report 6035863-X (Version None)
Quarter: 2009Q1

REPORT INFORMATION
  Report Type: 
  Country: None (occurrence: None)
  Receive Date: 20090113
  Receipt Date: 20090112
  Transmission Date: 20090719
  Serious: Yes (Hospitalization)
  Sender: FDA-Public Use
  Company Number: PHHO2008DE14474

PATIENT
  Sex: Female
  Weight: 124 kg

DRUGS (2)
  1. STI571/CGP57148B T35717+CAPS [Suspect]
     Indication: CHRONIC MYELOID LEUKAEMIA
     Dosage: 800 MG DAILY
     Route: 048
     Dates: start: 20071012
  2. STI571/CGP57148B T35717+CAPS [Suspect]
     Dosage: 400 MG DAILY
     Route: 048

REACTIONS (3)
  - BORRELIA INFECTION [None]
  - DEAFNESS UNILATERAL [None]
  - TINNITUS [None]
